FAERS Safety Report 25241497 (Version 2)
Quarter: 2025Q3

REPORT INFORMATION
  Report Type: Report from Study
  Country: JP (occurrence: JP)
  Receive Date: 20250426
  Receipt Date: 20250907
  Transmission Date: 20251021
  Serious: Yes (Hospitalization, Other)
  Sender: ABBVIE
  Company Number: JP-TAKEDA-2020TJP005888

PATIENT
  Age: 52 Year
  Sex: Male

DRUGS (5)
  1. LEUPROLIDE ACETATE [Suspect]
     Active Substance: LEUPROLIDE ACETATE
     Indication: Bulbospinal muscular atrophy congenital
     Dosage: 11.25 MILLIGRAM, Q3MONTHS
     Route: 058
     Dates: start: 201710
  2. LEUPROLIDE ACETATE [Suspect]
     Active Substance: LEUPROLIDE ACETATE
     Dosage: 11.25 MILLIGRAM, Q3MONTHS
     Route: 058
     Dates: start: 20180417
  3. SODIUM SELENITE [Concomitant]
     Active Substance: SODIUM SELENITE
     Indication: Product used for unknown indication
  4. ROSUVASTATIN CALCIUM [Concomitant]
     Active Substance: ROSUVASTATIN CALCIUM
     Indication: Product used for unknown indication
     Route: 065
     Dates: start: 20210426
  5. BONALON [Concomitant]
     Active Substance: ALENDRONATE SODIUM
     Indication: Back pain
     Route: 065
     Dates: start: 20190419

REACTIONS (6)
  - Thrombocytopenic purpura [Recovering/Resolving]
  - Male sexual dysfunction [Not Recovered/Not Resolved]
  - Pneumonia [Recovered/Resolved]
  - Hypertension [Unknown]
  - Lipid metabolism disorder [Not Recovered/Not Resolved]
  - Bone density decreased [Recovering/Resolving]

NARRATIVE: CASE EVENT DATE: 20171001
